FAERS Safety Report 14194299 (Version 1)
Quarter: 2017Q4

REPORT INFORMATION
  Report Type: Spontaneous
  Country: US (occurrence: US)
  Receive Date: 20171115
  Receipt Date: 20171115
  Transmission Date: 20180321
  Serious: Yes (Other)
  Sender: FDA-Public Use
  Company Number: None

PATIENT
  Age: 29 Year
  Sex: Female
  Weight: 65.25 kg

DRUGS (2)
  1. PRENATAL VITAMINS [Concomitant]
     Active Substance: VITAMINS
  2. CLOMIPHENE CITRATE 50 MG TABLETS [Suspect]
     Active Substance: CLOMIPHENE CITRATE
     Indication: INFERTILITY
     Dosage: ?          QUANTITY:5 TABLET(S);?
     Route: 048
     Dates: start: 20171106, end: 20171110

REACTIONS (6)
  - Vomiting [None]
  - Insomnia [None]
  - Anxiety [None]
  - Headache [None]
  - Vision blurred [None]
  - Nausea [None]

NARRATIVE: CASE EVENT DATE: 20171109
